FAERS Safety Report 5128395-4 (Version None)
Quarter: 2006Q4

REPORT INFORMATION
  Report Type: 
  Country: None (occurrence: None)
  Receive Date: 20061017
  Receipt Date: 20061006
  Transmission Date: 20070319
  Serious: Yes (Other)
  Sender: FDA-Public Use
  Company Number: PHHO2006BR16774

PATIENT
  Age: 40 Year
  Sex: Female
  Weight: 62 kg

DRUGS (3)
  1. ZELMAC / HTF 919A [Suspect]
     Indication: CONSTIPATION
     Dosage: 6 MG, BID
     Route: 048
  2. OMEPRAZOLE [Concomitant]
  3. BROMOPRIDE [Concomitant]

REACTIONS (5)
  - AGITATION [None]
  - ANXIETY [None]
  - IRRITABILITY [None]
  - NERVOUSNESS [None]
  - RENAL PAIN [None]
